FAERS Safety Report 20016753 (Version 1)
Quarter: 2021Q4

REPORT INFORMATION
  Report Type: Spontaneous
  Country: US (occurrence: None)
  Receive Date: 20211105
  Receipt Date: 20211105
  Transmission Date: 20220303
  Serious: Yes (Hospitalization)
  Sender: FDA-Public Use
  Company Number: None

PATIENT
  Age: 77 Year
  Sex: Female
  Weight: 65.25 kg

DRUGS (10)
  1. XIIDRA [Suspect]
     Active Substance: LIFITEGRAST
     Indication: Dry eye
     Dosage: FREQUENCY : EVERY 12 HOURS;?
     Route: 047
     Dates: start: 20210925, end: 20211015
  2. XIIDRA [Suspect]
     Active Substance: LIFITEGRAST
     Indication: Sjogren^s syndrome
  3. TIROSINT [Concomitant]
     Active Substance: LEVOTHYROXINE SODIUM
  4. ESTRACE [Concomitant]
     Active Substance: ESTRADIOL
  5. PROGESTERONE [Concomitant]
     Active Substance: PROGESTERONE
  6. Estradiol spray [Concomitant]
  7. Hydrochloriquine [Concomitant]
  8. FISH OIL [Concomitant]
     Active Substance: FISH OIL
  9. Nac [Concomitant]
  10. VITAMIN D3 [Concomitant]
     Active Substance: CHOLECALCIFEROL

REACTIONS (7)
  - Sensory loss [None]
  - Transient ischaemic attack [None]
  - Parathyroid disorder [None]
  - Inflammation [None]
  - Neoplasm malignant [None]
  - Headache [None]
  - Pain [None]

NARRATIVE: CASE EVENT DATE: 20211015
